FAERS Safety Report 10173174 (Version 1)
Quarter: 2014Q2

REPORT INFORMATION
  Report Type: Spontaneous
  Country: US (occurrence: None)
  Receive Date: 20140425
  Receipt Date: 20140425
  Transmission Date: 20141212
  Serious: Yes (Other)
  Sender: FDA-Public Use
  Company Number: 13032535

PATIENT
  Age: 74 Year
  Sex: Female
  Weight: 60 kg

DRUGS (2)
  1. ZELBORAF [Suspect]
     Indication: COLON CANCER
     Route: 048
     Dates: start: 20131001, end: 20131105
  2. PANITUMUMAB (PANITUMUMAB) [Concomitant]

REACTIONS (4)
  - Malaise [None]
  - Fatigue [None]
  - Alanine aminotransferase increased [None]
  - Aspartate aminotransferase increased [None]
